FAERS Safety Report 26038866 (Version 1)
Quarter: 2025Q4

REPORT INFORMATION
  Report Type: Spontaneous
  Country: US (occurrence: US)
  Receive Date: 20251113
  Receipt Date: 20251113
  Transmission Date: 20260118
  Serious: Yes (Hospitalization)
  Sender: Phathom Pharmaceuticals
  Company Number: US-PHATHOM PHARMACEUTICALS INC.-2025PHT03257

PATIENT
  Age: 67 Year
  Sex: Female
  Weight: 92.1 kg

DRUGS (10)
  1. VOQUEZNA [Suspect]
     Active Substance: VONOPRAZAN FUMARATE
     Indication: Diaphragmatic hernia
     Dosage: 20 MG
     Route: 048
     Dates: start: 20250804, end: 202510
  2. VOQUEZNA [Suspect]
     Active Substance: VONOPRAZAN FUMARATE
     Indication: Oesophageal ulcer
  3. EZETIMIBE [Concomitant]
     Active Substance: EZETIMIBE
  4. ROSUVASTATIN [Concomitant]
     Active Substance: ROSUVASTATIN
  5. METOPROLOL TARTRATE AND HYDROCHLOROTHIAZIDE [Concomitant]
     Active Substance: HYDROCHLOROTHIAZIDE\METOPROLOL TARTRATE
  6. CLOPIDOGREL [Concomitant]
     Active Substance: CLOPIDOGREL BISULFATE
  7. DULOXETINE [Concomitant]
     Active Substance: DULOXETINE
  8. PENTOXIFYLLINE [Concomitant]
     Active Substance: PENTOXIFYLLINE
  9. SYNTHROID [Concomitant]
     Active Substance: LEVOTHYROXINE SODIUM
  10. HYDROXYZINE HYDROCHLORIDE [Concomitant]
     Active Substance: HYDROXYZINE HYDROCHLORIDE

REACTIONS (1)
  - Infection [Unknown]

NARRATIVE: CASE EVENT DATE: 20251028
